FAERS Safety Report 8171270-1 (Version None)
Quarter: 2012Q1

REPORT INFORMATION
  Report Type: 
  Country: None (occurrence: None)
  Receive Date: 20120104
  Receipt Date: 20111117
  Transmission Date: 20120608
  Serious: No
  Sender: FDA-Public Use
  Company Number: 2011HGS-002835

PATIENT
  Age: 41 Year
  Sex: Female
  Weight: 92.9874 kg

DRUGS (12)
  1. CLONAZEPAM [Concomitant]
  2. PLAQUENIL (HYDROXYCHLOROQUINE SULFATE)(HYDROXYCHLOROQUINE SULFATE) [Concomitant]
  3. METHOTREXATE [Concomitant]
  4. SYNTHROID(LEVOTHYROXINE SODIUM)(LEVOTHYROXINE SODIUM [Concomitant]
  5. TOPIRAMATE [Concomitant]
  6. REDNISONE(PREDNISONE) (PREDNISONE) [Concomitant]
  7. FOLIC ACID [Concomitant]
  8. VITAMIN D3(COLECALCIFEROL)(COLECALCIFEROL) [Concomitant]
  9. BENLYSTA [Suspect]
     Indication: SYSTEMIC LUPUS ERYTHEMATOSUS
     Dosage: 1 IN 14 D, INTRAVENOUS DRIP
     Route: 041
     Dates: start: 20111103
  10. NEXIUM(ESOMEPRAZOLE MAGNESIUM)(ESOMEPRAZOLE [Concomitant]
  11. VENLAFAXINE ER(VENLAFAXINE)(VENLAFAXINE) [Concomitant]
  12. SEROQUEL XR(QUETIAPINE FUMARATE)(QUETIAPINE FUMARATE) [Concomitant]

REACTIONS (1)
  - UPPER RESPIRATORY TRACT INFECTION [None]
